FAERS Safety Report 10687157 (Version 1)
Quarter: 2014Q4

REPORT INFORMATION
  Report Type: Spontaneous
  Country: US (occurrence: None)
  Receive Date: 20141229
  Receipt Date: 20141229
  Transmission Date: 20150529
  Serious: Yes (Other)
  Sender: FDA-Public Use
  Company Number: US-RRD-14-00133

PATIENT
  Age: 65 Year
  Sex: Female

DRUGS (1)
  1. CLORAZEPATE [Suspect]
     Active Substance: CLORAZEPATE DIPOTASSIUM
     Indication: ANXIETY
     Dosage: 3.75 MG (3.75 MG, SOMETIMES AS NEEDED), ORAL
     Route: 048

REACTIONS (4)
  - Intestinal polyp [None]
  - Gastric polyps [None]
  - Oesophageal ulcer [None]
  - Diarrhoea [None]

NARRATIVE: CASE EVENT DATE: 2007
